FAERS Safety Report 8210146-8 (Version None)
Quarter: 2012Q1

REPORT INFORMATION
  Report Type: 
  Country: None (occurrence: None)
  Receive Date: 20120314
  Receipt Date: 20120119
  Transmission Date: 20120608
  Serious: No
  Sender: FDA-Public Use
  Company Number: US-ASTRAZENECA-2012SE04147

PATIENT
  Age: 62 Year
  Sex: Female

DRUGS (7)
  1. PROVERA [Concomitant]
  2. NORVASC [Concomitant]
  3. PREMARIN [Concomitant]
  4. TOPROL-XL [Suspect]
     Route: 048
  5. CYMBALTA [Concomitant]
  6. PROTONIX [Concomitant]
  7. TOPROL-XL [Suspect]
     Route: 048

REACTIONS (1)
  - GASTROOESOPHAGEAL REFLUX DISEASE [None]
